FAERS Safety Report 9914322 (Version 2)
Quarter: 2014Q1

REPORT INFORMATION
  Report Type: Spontaneous
  Country: DE (occurrence: DE)
  Receive Date: 20140220
  Receipt Date: 20140227
  Transmission Date: 20141002
  Serious: Yes (Hospitalization)
  Sender: FDA-Public Use
  Company Number: DE-B.I. PHARMACEUTICALS,INC./RIDGEFIELD-2014-BI-07553YA

PATIENT
  Sex: Male

DRUGS (5)
  1. TAMSULOSIN [Suspect]
     Indication: PRODUCT USED FOR UNKNOWN INDICATION
     Dosage: 0.4 MG
     Route: 065
  2. EXELON [Suspect]
     Indication: DEMENTIA ALZHEIMER^S TYPE
     Dosage: 4.6 MG
     Route: 062
     Dates: start: 20130820, end: 20131111
  3. VERAPAMIL (VERAPAMIL) [Concomitant]
     Route: 065
     Dates: start: 2005
  4. ATMADISC (FLUTICASONE PROPIONATE, SALMETEROL XINAFOATE) [Concomitant]
     Route: 065
     Dates: start: 2003
  5. ISMN (ISOSORBIDE MONONITRATE) [Concomitant]
     Route: 065
     Dates: start: 2005

REACTIONS (1)
  - Delirium [Recovered/Resolved with Sequelae]
